FAERS Safety Report 8929042 (Version 1)
Quarter: 2012Q4

REPORT INFORMATION
  Report Type: 
  Country: IL (occurrence: IL)
  Receive Date: 20121128
  Receipt Date: 20121128
  Transmission Date: 20130627
  Serious: Yes (Death, Other)
  Sender: FDA-Public Use
  Company Number: PHHY2012IL014655

PATIENT
  Age: 67 Year
  Sex: Male

DRUGS (2)
  1. SANDOSTATIN LAR [Suspect]
     Indication: CARCINOID TUMOUR
     Dosage: 30 mg,every 28 days
     Dates: start: 20111025
  2. SANDOSTATIN LAR [Suspect]
     Dosage: 30 mg,every 28 days
     Dates: start: 20120214, end: 20121030

REACTIONS (2)
  - Death [Fatal]
  - Neoplasm recurrence [Unknown]
